FAERS Safety Report 24424042 (Version 3)
Quarter: 2024Q4

REPORT INFORMATION
  Report Type: Spontaneous
  Country: US (occurrence: US)
  Receive Date: 20241010
  Receipt Date: 20241028
  Transmission Date: 20250115
  Serious: No
  Sender: Haleon PLC
  Company Number: US-HALEON-2201230

PATIENT
  Age: 82 Year
  Sex: Male

DRUGS (3)
  1. VOLTAREN ARTHRITIS PAIN [Suspect]
     Active Substance: DICLOFENAC SODIUM
     Indication: Pain
     Dosage: EXPDATE:20261231
     Dates: start: 20241007
  2. OXYCODONE [Concomitant]
     Active Substance: OXYCODONE
     Indication: Arthralgia
  3. HYDROCODONE [Concomitant]
     Active Substance: HYDROCODONE
     Indication: Arthralgia

REACTIONS (4)
  - Product use in unapproved indication [Unknown]
  - Contraindicated product administered [Unknown]
  - Product complaint [Unknown]
  - Drug effective for unapproved indication [Unknown]

NARRATIVE: CASE EVENT DATE: 20241007
